FAERS Safety Report 22186352 (Version 2)
Quarter: 2023Q2

REPORT INFORMATION
  Report Type: Report from Study
  Country: AR (occurrence: AR)
  Receive Date: 20230407
  Receipt Date: 20230612
  Transmission Date: 20230722
  Serious: Yes (Hospitalization)
  Sender: FDA-Public Use
  Company Number: AR-BIOGEN-2023BI01197882

PATIENT
  Sex: Male

DRUGS (2)
  1. TYSABRI [Suspect]
     Active Substance: NATALIZUMAB
     Indication: Multiple sclerosis
     Dosage: LAST INFUSION ON 20-MAR-2023
     Route: 050
     Dates: start: 20220106
  2. TYSABRI [Suspect]
     Active Substance: NATALIZUMAB
     Dosage: LAST INFUSION ON 20-MAR-2023
     Route: 050
     Dates: start: 201808

REACTIONS (1)
  - Intervertebral disc protrusion [Unknown]
